FAERS Safety Report 5117316-6 (Version None)
Quarter: 2006Q3

REPORT INFORMATION
  Report Type: 
  Country: None (occurrence: None)
  Receive Date: 20060929
  Receipt Date: 20060920
  Transmission Date: 20061208
  Serious: Yes (Other)
  Sender: FDA-Public Use
  Company Number: PHEH2006US12007

PATIENT
  Age: 45 Year
  Sex: Male

DRUGS (1)
  1. EXJADE [Suspect]
     Indication: MYELODYSPLASTIC SYNDROME
     Dosage: 250 MG, QD
     Route: 048
     Dates: start: 20060718, end: 20060811

REACTIONS (3)
  - BONE MARROW TRANSPLANT [None]
  - GRAFT VERSUS HOST DISEASE [None]
  - RASH [None]
